FAERS Safety Report 9100785 (Version 1)
Quarter: 2013Q1

REPORT INFORMATION
  Report Type: Spontaneous
  Country: BR (occurrence: BR)
  Receive Date: 20130214
  Receipt Date: 20130214
  Transmission Date: 20140127
  Serious: Yes (Other)
  Sender: FDA-Public Use
  Company Number: PHHY2013BR013174

PATIENT
  Sex: Male

DRUGS (1)
  1. FORASEQ [Suspect]
     Dosage: UNK Q8H

REACTIONS (2)
  - Cardiomegaly [Unknown]
  - Pulmonary oedema [Unknown]
